FAERS Safety Report 24432458 (Version 1)
Quarter: 2024Q4

REPORT INFORMATION
  Report Type: Spontaneous
  Country: CA (occurrence: CA)
  Receive Date: 20241014
  Receipt Date: 20241014
  Transmission Date: 20250115
  Serious: Yes (Other)
  Sender: ROCHE
  Company Number: CA-ROCHE-3159621

PATIENT
  Age: 44 Year
  Sex: Female
  Weight: 100 kg

DRUGS (20)
  1. RITUXIMAB [Suspect]
     Active Substance: RITUXIMAB
     Indication: Rheumatoid arthritis
     Route: 041
  2. ACETAMINOPHEN [Concomitant]
     Active Substance: ACETAMINOPHEN
     Indication: Premedication
     Route: 048
  3. BACLOFEN [Concomitant]
     Active Substance: BACLOFEN
  4. CALCIUM CARBONATE [Concomitant]
     Active Substance: CALCIUM CARBONATE
  5. CELEBREX [Concomitant]
     Active Substance: CELECOXIB
  6. CRANBERRY [Concomitant]
     Active Substance: CRANBERRY
  7. DEPO-MEDROL [Concomitant]
     Active Substance: METHYLPREDNISOLONE ACETATE
     Route: 014
  8. DILAUDID [Concomitant]
     Active Substance: HYDROMORPHONE HYDROCHLORIDE
  9. DIPHENHYDRAMINE HYDROCHLORIDE [Concomitant]
     Active Substance: DIPHENHYDRAMINE HYDROCHLORIDE
     Indication: Premedication
     Route: 048
  10. ENDOMETRIN [Concomitant]
     Active Substance: PROGESTERONE
     Route: 067
  11. ESOMEPRAZOLE [Concomitant]
     Active Substance: ESOMEPRAZOLE
     Route: 065
  12. FEMARA [Concomitant]
     Active Substance: LETROZOLE
  13. FOLIC ACID [Concomitant]
     Active Substance: FOLIC ACID
  14. HYDROMORPHONE HYDROCHLORIDE [Concomitant]
     Active Substance: HYDROMORPHONE HYDROCHLORIDE
  15. HYDROXYCHLOROQUINE SULFATE [Concomitant]
     Active Substance: HYDROXYCHLOROQUINE SULFATE
  16. METHYLPREDNISOLONE [Concomitant]
     Active Substance: METHYLPREDNISOLONE
     Indication: Premedication
     Route: 042
  17. NASONEX [Concomitant]
     Active Substance: MOMETASONE FUROATE
  18. PREDNISONE [Concomitant]
     Active Substance: PREDNISONE
  19. ZINC [Concomitant]
     Active Substance: ZINC
  20. METHYLPREDNISOLONE ACETATE [Concomitant]
     Active Substance: METHYLPREDNISOLONE ACETATE

REACTIONS (3)
  - Wound infection [Not Recovered/Not Resolved]
  - Infusion related reaction [Not Recovered/Not Resolved]
  - Drug hypersensitivity [Not Recovered/Not Resolved]
